FAERS Safety Report 23750207 (Version 2)
Quarter: 2024Q4

REPORT INFORMATION
  Report Type: Spontaneous
  Country: PL (occurrence: PL)
  Receive Date: 20240417
  Receipt Date: 20241205
  Transmission Date: 20250114
  Serious: Yes (Other)
  Sender: SANDOZ
  Company Number: PL-Zentiva-2021-ZT-001844

PATIENT
  Age: 70 Year
  Sex: Male

DRUGS (19)
  1. DOCETAXEL [Suspect]
     Active Substance: DOCETAXEL
     Indication: Carcinoid tumour pulmonary
     Dosage: UNK
     Route: 065
     Dates: start: 201911
  2. DOCETAXEL [Suspect]
     Active Substance: DOCETAXEL
     Indication: Lung adenocarcinoma
     Dosage: UNK, CYCLIC
     Route: 065
     Dates: start: 201911
  3. DOCETAXEL [Suspect]
     Active Substance: DOCETAXEL
     Indication: Chemotherapy
  4. DOCETAXEL [Suspect]
     Active Substance: DOCETAXEL
     Indication: Non-small cell lung cancer
  5. DOCETAXEL [Suspect]
     Active Substance: DOCETAXEL
     Indication: Carcinoid tumour pulmonary
     Dosage: UNK
     Route: 065
     Dates: start: 201911
  6. DOCETAXEL [Suspect]
     Active Substance: DOCETAXEL
     Indication: Lung adenocarcinoma
     Dosage: UNK, CYCLIC
     Route: 065
     Dates: start: 201911
  7. DOCETAXEL [Suspect]
     Active Substance: DOCETAXEL
     Indication: Chemotherapy
  8. DOCETAXEL [Suspect]
     Active Substance: DOCETAXEL
     Indication: Non-small cell lung cancer
  9. FOLIC ACID [Suspect]
     Active Substance: FOLIC ACID
     Indication: Chemotherapy side effect prophylaxis
     Dosage: UNK
     Route: 065
  10. FOLIC ACID [Suspect]
     Active Substance: FOLIC ACID
     Indication: Anaemia
     Dosage: UNK (SYSTEMATIC USE)
     Route: 065
  11. NINTEDANIB [Suspect]
     Active Substance: NINTEDANIB
     Indication: Lung adenocarcinoma
     Dosage: 200 MG, QD (8 CYCLES)
     Route: 065
     Dates: start: 201911
  12. NINTEDANIB [Suspect]
     Active Substance: NINTEDANIB
     Indication: Non-small cell lung cancer
     Dosage: 2 X 200 MG / DAY WAS CONTINUED
     Route: 065
  13. NINTEDANIB [Suspect]
     Active Substance: NINTEDANIB
     Indication: Anaemia
     Dosage: 200 MG, Q12H (BID)
     Route: 065
     Dates: start: 201911
  14. PEMETREXED [Suspect]
     Active Substance: PEMETREXED
     Indication: Lung adenocarcinoma
     Dosage: 500 MG/M2, CYCLIC (3 CYCLES)
     Route: 065
     Dates: start: 201908
  15. PEMETREXED [Suspect]
     Active Substance: PEMETREXED
     Indication: Chemotherapy
  16. PEMETREXED [Suspect]
     Active Substance: PEMETREXED
     Indication: Non-small cell lung cancer
  17. METFORMIN [Concomitant]
     Active Substance: METFORMIN HYDROCHLORIDE
     Indication: Type 2 diabetes mellitus
     Dosage: UNK
     Route: 065
  18. PREDNISONE [Concomitant]
     Active Substance: PREDNISONE
     Indication: Rheumatoid arthritis
     Dosage: UNK
     Route: 065
  19. VITAMIN B12 [Concomitant]
     Active Substance: CYANOCOBALAMIN
     Indication: Product used for unknown indication
     Dosage: UNK
     Route: 065

REACTIONS (3)
  - Disease progression [Unknown]
  - Anaemia [Recovered/Resolved]
  - Drug ineffective [Unknown]
